FAERS Safety Report 6195857-0 (Version None)
Quarter: 2009Q2

REPORT INFORMATION
  Report Type: 
  Country: None (occurrence: None)
  Receive Date: 20090520
  Receipt Date: 20090520
  Transmission Date: 20091009
  Serious: Yes (Death, Life-Threatening, Hospitalization, Other)
  Sender: FDA-Public Use
  Company Number: US-B.I. PHARMACEUTICALS,INC./RIDGEFIELD-2009-DE-03686DE

PATIENT
  Sex: Male

DRUGS (5)
  1. SPIRIVA [Suspect]
     Indication: CHRONIC OBSTRUCTIVE PULMONARY DISEASE
     Dates: start: 20090421, end: 20090426
  2. RIVAROXABAN [Suspect]
     Indication: CEREBROVASCULAR ACCIDENT PROPHYLAXIS
     Route: 048
     Dates: start: 20080902, end: 20081114
  3. RIVAROXABAN [Suspect]
     Route: 048
     Dates: start: 20081119, end: 20090423
  4. WARFARIN SODIUM [Suspect]
     Indication: CEREBROVASCULAR ACCIDENT PROPHYLAXIS
     Dosage: 1, 2.5, 5 MG ADJUSTED DOSE
     Route: 048
     Dates: start: 20081119, end: 20090423
  5. WARFARIN SODIUM [Suspect]
     Dosage: 1, 2.5, 5 MG ADJUSTED DOSE
     Route: 048
     Dates: start: 20081119, end: 20090423

REACTIONS (4)
  - CARDIO-RESPIRATORY ARREST [None]
  - CHRONIC OBSTRUCTIVE PULMONARY DISEASE [None]
  - MYOCARDIAL INFARCTION [None]
  - RESPIRATORY FAILURE [None]
